FAERS Safety Report 9342512 (Version 2)
Quarter: 2013Q3

REPORT INFORMATION
  Report Type: Spontaneous
  Country: FR (occurrence: FR)
  Receive Date: 20130611
  Receipt Date: 20130806
  Transmission Date: 20140515
  Serious: Yes (Hospitalization)
  Sender: FDA-Public Use
  Company Number: FR-JNJFOC-20130604816

PATIENT
  Age: 57 Year
  Sex: Female

DRUGS (4)
  1. IXPRIM [Suspect]
     Indication: PAIN
     Route: 048
     Dates: start: 20130509, end: 20130509
  2. BETNEVAL [Concomitant]
     Indication: ECZEMA
     Route: 061
  3. URBANYL [Concomitant]
     Indication: PRODUCT USED FOR UNKNOWN INDICATION
     Route: 065
  4. IMOVANE [Concomitant]
     Indication: PRODUCT USED FOR UNKNOWN INDICATION
     Route: 048

REACTIONS (1)
  - Epilepsy [Recovered/Resolved]
